FAERS Safety Report 20379679 (Version 5)
Quarter: 2022Q2

REPORT INFORMATION
  Report Type: Report from Study
  Country: CA (occurrence: CA)
  Receive Date: 20220126
  Receipt Date: 20220513
  Transmission Date: 20220721
  Serious: Yes (Other)
  Sender: FDA-Public Use
  Company Number: CA-PFIZER INC-202101242501

PATIENT
  Age: 47 Year
  Sex: Male
  Weight: 99.6 kg

DRUGS (12)
  1. ABROCITINIB [Suspect]
     Active Substance: ABROCITINIB
     Indication: Dermatitis atopic
     Dosage: 200 MG, 1X/DAY
     Route: 048
     Dates: start: 20210421
  2. INDAPAMIDE [Concomitant]
     Active Substance: INDAPAMIDE
     Indication: Hypertension
     Dosage: 2.5 MG, 1X/DAY
     Route: 048
     Dates: start: 2019
  3. RUPATADINE FUMARATE [Concomitant]
     Active Substance: RUPATADINE FUMARATE
     Indication: Pruritus
     Dosage: 10 MG, AS NEEDED (PRN)
     Route: 048
     Dates: start: 20201007
  4. IMOVANE [Concomitant]
     Active Substance: ZOPICLONE
     Indication: Sleep disorder
     Dosage: 5 MG, AS NEEDED (PRN)
     Route: 048
     Dates: start: 20201007
  5. BENOXYL [BENZOYL PEROXIDE] [Concomitant]
     Indication: Acne
     Dosage: WASH 10%, 1 APPLICATION, 1X/DAY AS NEEDED (PRN), CLEANSER PEROXIDE
     Route: 061
     Dates: start: 20201104
  6. PANTOPRAZOLE [Concomitant]
     Active Substance: PANTOPRAZOLE
     Indication: Gastrooesophageal reflux disease
     Dosage: 40 MG, 1X/DAY AS NEEDED (PRN)
     Route: 048
     Dates: start: 20201031
  7. HYDROCORTISONE VALERATE [Concomitant]
     Active Substance: HYDROCORTISONE VALERATE
     Indication: Dermatitis atopic
     Dosage: 1 APPLICATION, 1X/DAY
     Route: 061
     Dates: start: 20201021
  8. TARO-MOMETASONE [Concomitant]
     Indication: Dermatitis atopic
     Dosage: 1 APPLICATION, 1X/DAY AT NIGHT (QHS)
     Route: 061
     Dates: start: 20201021
  9. ELIDEL [Concomitant]
     Active Substance: PIMECROLIMUS
     Indication: Dermatitis atopic
     Dosage: 1 APPLICATION, 2X/DAY
     Route: 061
     Dates: start: 20201021
  10. BETADERM [Concomitant]
     Active Substance: BETAMETHASONE VALERATE
     Indication: Dermatitis atopic
     Dosage: 1 APPLICATION, 2X/DAY
     Route: 061
     Dates: start: 20210421
  11. BETADERM [Concomitant]
     Active Substance: BETAMETHASONE VALERATE
     Indication: Dermatitis atopic
     Dosage: 1 APPLICATION, 2X/DAY
     Route: 061
     Dates: start: 20210421
  12. BETAMETHASONE VALERATE [Concomitant]
     Active Substance: BETAMETHASONE VALERATE
     Indication: Dermatitis atopic
     Dosage: 1 APPLICATION, 2X/DAY
     Route: 061
     Dates: start: 20210421

REACTIONS (1)
  - Eczema herpeticum [Recovered/Resolved]

NARRATIVE: CASE EVENT DATE: 20210916
